FAERS Safety Report 18845957 (Version 3)
Quarter: 2021Q4

REPORT INFORMATION
  Report Type: Spontaneous
  Country: US (occurrence: US)
  Receive Date: 20210204
  Receipt Date: 20211210
  Transmission Date: 20220303
  Serious: Yes (Other)
  Sender: FDA-Public Use
  Company Number: US-PFIZER INC-2020267306

PATIENT
  Age: 53 Year
  Sex: Male

DRUGS (3)
  1. LYRICA [Suspect]
     Active Substance: PREGABALIN
     Indication: Diabetic neuropathy
     Dosage: 300 MG, 2X/DAY
     Route: 048
  2. LYRICA [Suspect]
     Active Substance: PREGABALIN
     Indication: Diabetic mononeuropathy
  3. LYRICA [Suspect]
     Active Substance: PREGABALIN
     Indication: Diabetes mellitus

REACTIONS (2)
  - Drug dependence [Unknown]
  - Off label use [Unknown]
